FAERS Safety Report 10008413 (Version 2)
Quarter: 2014Q1

REPORT INFORMATION
  Report Type: Spontaneous
  Country: US (occurrence: US)
  Receive Date: 20140313
  Receipt Date: 20140313
  Transmission Date: 20141002
  Serious: No
  Sender: FDA-Public Use
  Company Number: US-GILEAD-2013-0076332

PATIENT
  Age: 64 Year
  Sex: Male
  Weight: 283 kg

DRUGS (1)
  1. LETAIRIS [Suspect]
     Indication: PULMONARY ARTERIAL HYPERTENSION
     Dates: start: 20130118, end: 20130313

REACTIONS (3)
  - Oedema peripheral [Recovered/Resolved]
  - Oedema [Recovered/Resolved]
  - Dizziness [Recovered/Resolved]
